FAERS Safety Report 12943112 (Version 1)
Quarter: 2016Q4

REPORT INFORMATION
  Report Type: Report from Study
  Country: US (occurrence: US)
  Receive Date: 20161115
  Receipt Date: 20161115
  Transmission Date: 20170207
  Serious: Yes (Hospitalization)
  Sender: FDA-Public Use
  Company Number: US-MALLINCKRODT-T201605640

PATIENT
  Age: 44 Year
  Sex: Female

DRUGS (1)
  1. REPOSITORY CORTICOTROPIN INJECTION [Suspect]
     Active Substance: CORTICOTROPIN
     Indication: SYSTEMIC LUPUS ERYTHEMATOSUS
     Dosage: 80 UNITS TWO TIME SPER WEEK
     Route: 058
     Dates: start: 20160518, end: 20161018

REACTIONS (3)
  - Hepatic enzyme increased [Not Recovered/Not Resolved]
  - Pain [Not Recovered/Not Resolved]
  - Pancreatitis [Not Recovered/Not Resolved]

NARRATIVE: CASE EVENT DATE: 20161028
